FAERS Safety Report 6732158-3 (Version None)
Quarter: 2010Q2

REPORT INFORMATION
  Report Type: 
  Country: None (occurrence: None)
  Receive Date: 20100519
  Receipt Date: 20100511
  Transmission Date: 20101027
  Serious: Yes (Hospitalization)
  Sender: FDA-Public Use
  Company Number: A0778090A

PATIENT
  Age: 46 Year
  Sex: Male
  Weight: 96.4 kg

DRUGS (8)
  1. AVANDIA [Suspect]
     Indication: DIABETES MELLITUS
     Dosage: 8MG PER DAY
     Route: 048
     Dates: start: 20001001, end: 20070601
  2. TRICOR [Concomitant]
  3. QUININE SULFATE [Concomitant]
  4. LOPRESSOR [Concomitant]
  5. GLUCOVANCE [Concomitant]
  6. CRESTOR [Concomitant]
  7. PRINIVIL [Concomitant]
  8. METOPROLOL TARTRATE [Concomitant]

REACTIONS (5)
  - CARDIAC DISORDER [None]
  - CHEST PAIN [None]
  - DYSPNOEA [None]
  - MYOCARDIAL INFARCTION [None]
  - MYOCARDIAL ISCHAEMIA [None]
